FAERS Safety Report 20297650 (Version 1)
Quarter: 2022Q1

REPORT INFORMATION
  Report Type: Spontaneous
  Country: US (occurrence: US)
  Receive Date: 20220105
  Receipt Date: 20220105
  Transmission Date: 20220423
  Serious: Yes (Death, Hospitalization)
  Sender: FDA-Public Use
  Company Number: US-ROCHE-2719193

PATIENT
  Age: 78 Year
  Sex: Female
  Weight: 92.1 kg

DRUGS (4)
  1. ACTIVASE [Suspect]
     Active Substance: ALTEPLASE
     Indication: Ischaemic stroke
     Dosage: LYOPHILIZED POWDER 1 MG/1 ML., X1 DOSE
     Route: 042
     Dates: start: 20201010, end: 20201010
  2. ACTIVASE [Suspect]
     Active Substance: ALTEPLASE
     Dosage: LYOPHILIZED POWDER 1 MG/1 ML., X1 DOSE
     Route: 065
     Dates: start: 20200913
  3. ETOMIDATE [Concomitant]
     Active Substance: ETOMIDATE
     Indication: Sedation
     Dosage: FREQUENCY : ONCE
     Route: 042
     Dates: start: 20201010, end: 20201010
  4. FENTANYL [Concomitant]
     Active Substance: FENTANYL
     Indication: Sedation
     Route: 042
     Dates: start: 20201010, end: 20201010

REACTIONS (4)
  - Haemorrhage intracranial [Fatal]
  - Cerebral haemorrhage [Fatal]
  - Subdural haemorrhage [Unknown]
  - Subarachnoid haemorrhage [Unknown]

NARRATIVE: CASE EVENT DATE: 20200913
